FAERS Safety Report 4746412-8 (Version None)
Quarter: 2005Q3

REPORT INFORMATION
  Report Type: 
  Country: None (occurrence: None)
  Receive Date: 20050815
  Receipt Date: 20050729
  Transmission Date: 20060218
  Serious: Yes (Hospitalization)
  Sender: FDA-Public Use
  Company Number: DE_050816578

PATIENT
  Age: 40 Year
  Sex: Male

DRUGS (5)
  1. CYMBALTA [Suspect]
     Indication: DEPRESSION
     Dosage: 90 MG DAY
     Dates: start: 20050404, end: 20050428
  2. CYMBALTA [Suspect]
     Indication: SOMATISATION DISORDER
     Dosage: 90 MG DAY
     Dates: start: 20050404, end: 20050428
  3. AMITRIPTYLINE HCL [Concomitant]
  4. PANTOPRAZOLE SODIUM [Concomitant]
  5. DIAZEPAM [Concomitant]

REACTIONS (5)
  - BURNING SENSATION [None]
  - ERYTHEMA [None]
  - PRURITUS [None]
  - RASH [None]
  - SKIN EXFOLIATION [None]
